FAERS Safety Report 10361903 (Version 1)
Quarter: 2014Q3

REPORT INFORMATION
  Report Type: Spontaneous
  Country: JP (occurrence: JP)
  Receive Date: 20140805
  Receipt Date: 20140805
  Transmission Date: 20150326
  Serious: Yes (Life-Threatening)
  Sender: FDA-Public Use
  Company Number: PHHY2013JP159698

PATIENT
  Age: 63 Year
  Sex: Male

DRUGS (1)
  1. EXJADE [Suspect]
     Active Substance: DEFERASIROX
     Indication: LYMPHOMA
     Dosage: 500 MG, QD
     Route: 065

REACTIONS (1)
  - Blood bilirubin increased [Unknown]
